FAERS Safety Report 8617390 (Version 2)
Quarter: 2013Q2

REPORT INFORMATION
  Report Type: Report from Study
  Country: US (occurrence: US)
  Receive Date: 20120615
  Receipt Date: 20130514
  Transmission Date: 20140414
  Serious: Yes (Other)
  Sender: FDA-Public Use
  Company Number: US-BIOMARINP-001970

PATIENT
  Age: 23 Year
  Sex: Male
  Weight: 85.71 kg

DRUGS (8)
  1. KUVAN [Suspect]
     Indication: PHENYLKETONURIA
     Dosage: 1500MG,QD
     Route: 048
     Dates: start: 200803
  2. ALBUTEROL [Concomitant]
     Indication: PRODUCT USED FOR UNKNOWN INDICATION
     Route: 055
  3. STRATTERA [Concomitant]
     Indication: PRODUCT USED FOR UNKNOWN INDICATION
     Dosage: 80MG,QD
  4. MULTIVITAMIN [Concomitant]
     Indication: PRODUCT USED FOR UNKNOWN INDICATION
     Dosage: UNKUNK,QD
  5. PHENYL FREE 2 [Concomitant]
     Indication: PRODUCT USED FOR UNKNOWN INDICATION
     Dosage: 280G,QD
  6. FLOVENT [Concomitant]
     Indication: PRODUCT USED FOR UNKNOWN INDICATION
     Dosage: 2UNK,BID
     Route: 048
  7. PROVENTIL [Concomitant]
     Indication: PRODUCT USED FOR UNKNOWN INDICATION
  8. PROTONIX [Concomitant]
     Indication: PRODUCT USED FOR UNKNOWN INDICATION
     Dosage: 40MG,QD
     Route: 048

REACTIONS (1)
  - Gastrooesophageal reflux disease [Recovered/Resolved]
